FAERS Safety Report 7289085-5 (Version None)
Quarter: 2011Q1

REPORT INFORMATION
  Report Type: 
  Country: None (occurrence: None)
  Receive Date: 20110211
  Receipt Date: 20110210
  Transmission Date: 20110831
  Serious: Yes (Other)
  Sender: FDA-Public Use
  Company Number: GXKR2011DE00893

PATIENT
  Age: 47 Year
  Sex: Female

DRUGS (1)
  1. CEFADROXIL HEXAL [Suspect]
     Dosage: 1000 MG, BID
     Route: 048
     Dates: start: 20110207, end: 20110208

REACTIONS (1)
  - HAEMATEMESIS [None]
